FAERS Safety Report 8308877-4 (Version None)
Quarter: 2012Q2

REPORT INFORMATION
  Report Type: 
  Country: None (occurrence: None)
  Receive Date: 20120424
  Receipt Date: 20110525
  Transmission Date: 20120825
  Serious: Yes (Other)
  Sender: FDA-Public Use
  Company Number: US-TEVA-2011001862

PATIENT
  Sex: Female
  Weight: 61.29 kg

DRUGS (6)
  1. ULTRAM [Concomitant]
  2. KLONOPIN [Concomitant]
     Dates: start: 20100101
  3. ATENOLOL [Concomitant]
     Dates: start: 20010101
  4. EFFEXOR [Concomitant]
     Dates: start: 20010101
  5. PROVIGIL [Suspect]
     Indication: NARCOLEPSY
     Dosage: 400 MILLIGRAM;
     Route: 048
     Dates: end: 20110101
  6. ASPIRIN [Concomitant]
     Dates: start: 20010101

REACTIONS (3)
  - DRUG INEFFECTIVE [None]
  - SOMNOLENCE [None]
  - ROAD TRAFFIC ACCIDENT [None]
